FAERS Safety Report 24227876 (Version 1)
Quarter: 2024Q3

REPORT INFORMATION
  Report Type: Spontaneous
  Country: US (occurrence: US)
  Receive Date: 20240820
  Receipt Date: 20240820
  Transmission Date: 20241016
  Serious: No
  Sender: ROCHE
  Company Number: US-ROCHE-10000059634

PATIENT
  Sex: Female

DRUGS (14)
  1. XOLAIR PFS [Suspect]
     Active Substance: OMALIZUMAB
     Indication: Asthma
     Dosage: XOLAIR PFS 150 MG/ML
     Route: 058
  2. XOLAIR PFS [Suspect]
     Active Substance: OMALIZUMAB
  3. ADVAIR DISKU AEP [Concomitant]
     Dosage: ADVAIR DISKU AEP 500-50MC
  4. ALBUTEROL [Concomitant]
     Active Substance: ALBUTEROL
  5. ALPRAZOLAM [Concomitant]
     Active Substance: ALPRAZOLAM
  6. AMLODIPINE B [Concomitant]
  7. CLONIDINE HO [Concomitant]
  8. EPIPEN [Concomitant]
     Active Substance: EPINEPHRINE
  9. FARXIGA [Concomitant]
     Active Substance: DAPAGLIFLOZIN PROPANEDIOL
  10. FUROSEMIDE [Concomitant]
     Active Substance: FUROSEMIDE
  11. HYDROCODONE [Concomitant]
     Active Substance: HYDROCODONE
     Dosage: HYDROCODONE SOL 7.5-325M
  12. KLOR-CON [Concomitant]
     Active Substance: POTASSIUM CHLORIDE
     Dosage: KLOR CON PAC 20MEQ,
  13. METOPROLOL [Concomitant]
     Active Substance: METOPROLOL
  14. ROSUVASTATIN [Concomitant]
     Active Substance: ROSUVASTATIN\ROSUVASTATIN CALCIUM

REACTIONS (1)
  - Asthma [Unknown]
